FAERS Safety Report 8309512-1 (Version None)
Quarter: 2012Q2

REPORT INFORMATION
  Report Type: 
  Country: None (occurrence: None)
  Receive Date: 20120425
  Receipt Date: 20120419
  Transmission Date: 20120825
  Serious: No
  Sender: FDA-Public Use
  Company Number: US-PFIZER INC-2012098622

PATIENT
  Sex: Female
  Weight: 89.8 kg

DRUGS (1)
  1. GENOTROPIN [Suspect]
     Dosage: 0.6 MG, DAILY

REACTIONS (5)
  - PAIN [None]
  - INCORRECT DOSE ADMINISTERED [None]
  - ARTHRALGIA [None]
  - PAIN IN EXTREMITY [None]
  - PARAESTHESIA [None]
